FAERS Safety Report 24278337 (Version 1)
Quarter: 2024Q3

REPORT INFORMATION
  Report Type: Spontaneous
  Country: US (occurrence: None)
  Receive Date: 20240830
  Receipt Date: 20240830
  Transmission Date: 20241016
  Serious: No
  Sender: Public
  Company Number: None

PATIENT
  Age: 74 Year
  Sex: Female

DRUGS (9)
  1. XDEMVY [Suspect]
     Active Substance: LOTILANER
     Dosage: 1 DROP BID OPHTHALMIC?
     Route: 047
     Dates: start: 20240820, end: 20240824
  2. ATORVASTATIN [Concomitant]
     Active Substance: ATORVASTATIN
  3. CLARITIN [Concomitant]
     Active Substance: LORATADINE
  4. FISH OIL [Concomitant]
     Active Substance: FISH OIL
  5. HYDROCHLOROTHIAZIDE\LISINOPRIL [Concomitant]
     Active Substance: HYDROCHLOROTHIAZIDE\LISINOPRIL
  6. MULTIVITAMIN ADULTS [Concomitant]
  7. PROBIOTIC ADULT CAPSULES [Concomitant]
  8. TOBRADEX OPHTH SUS [Concomitant]
  9. VITAMIN D3 1000 UNITS [Concomitant]

REACTIONS (3)
  - Eye pruritus [None]
  - Therapy cessation [None]
  - Burning sensation [None]

NARRATIVE: CASE EVENT DATE: 20240820
